FAERS Safety Report 6908863-2 (Version None)
Quarter: 2010Q3

REPORT INFORMATION
  Report Type: 
  Country: None (occurrence: None)
  Receive Date: 20100805
  Receipt Date: 20100804
  Transmission Date: 20110219
  Serious: Yes (Hospitalization)
  Sender: FDA-Public Use
  Company Number: A0873985A

PATIENT
  Age: 43 Year
  Sex: Female

DRUGS (2)
  1. ALLI [Suspect]
     Indication: WEIGHT LOSS DIET
     Route: 048
     Dates: start: 20090401, end: 20090501
  2. MULTI-VITAMIN [Concomitant]

REACTIONS (8)
  - CHEST PAIN [None]
  - CHOLECYSTECTOMY [None]
  - DYSPEPSIA [None]
  - EXPIRED DRUG ADMINISTERED [None]
  - GALLBLADDER DISORDER [None]
  - HEPATIC INFECTION [None]
  - MALAISE [None]
  - PAIN [None]
